FAERS Safety Report 6425938-5 (Version None)
Quarter: 2009Q4

REPORT INFORMATION
  Report Type: 
  Country: None (occurrence: None)
  Receive Date: 20091102
  Receipt Date: 20091102
  Transmission Date: 20100525
  Serious: No
  Sender: FDA-Public Use
  Company Number: None

PATIENT
  Age: 37 Year
  Sex: Female
  Weight: 77.1115 kg

DRUGS (1)
  1. CLARITIN-D 24 HOUR [Suspect]
     Indication: SINUSITIS

REACTIONS (2)
  - CHEST PAIN [None]
  - MUSCLE SPASMS [None]
